FAERS Safety Report 24726967 (Version 1)
Quarter: 2024Q4

REPORT INFORMATION
  Report Type: Other
  Country: US (occurrence: US)
  Receive Date: 20241212
  Receipt Date: 20241212
  Transmission Date: 20250114
  Serious: Yes (Life-Threatening, Other)
  Sender: NUVO PHARMACEUTICALS
  Company Number: US-Nuvo Pharmaceuticals Inc-2166979

PATIENT
  Age: 3 Decade
  Sex: Male

DRUGS (2)
  1. DIAZEPAM [Suspect]
     Active Substance: DIAZEPAM
     Indication: Ulcerative keratitis
  2. MORPHINE SULFATE [Interacting]
     Active Substance: MORPHINE SULFATE

REACTIONS (3)
  - Respiratory depression [Recovered/Resolved]
  - Product use in unapproved indication [Unknown]
  - Drug interaction [Unknown]
